FAERS Safety Report 21819414 (Version 1)
Quarter: 2023Q1

REPORT INFORMATION
  Report Type: Spontaneous
  Country: US (occurrence: US)
  Receive Date: 20230104
  Receipt Date: 20230104
  Transmission Date: 20230418
  Serious: No
  Sender: FDA-Public Use
  Company Number: US-SK LIFE SCIENCE, INC-SKPVG-2022-000851

PATIENT

DRUGS (4)
  1. XCOPRI [Suspect]
     Active Substance: CENOBAMATE
     Indication: Seizure
     Dosage: UNK
     Route: 048
     Dates: start: 202205
  2. XCOPRI [Suspect]
     Active Substance: CENOBAMATE
     Indication: Tuberous sclerosis complex
     Dosage: 250 MILLIGRAM, ONCE DAILY AT BEDTIME, BLISTER PACK
     Route: 048
     Dates: end: 20221115
  3. XCOPRI [Suspect]
     Active Substance: CENOBAMATE
     Dosage: TWO 150MG TABLETS ONCE DAILY AT NIGHTTIME
     Route: 048
     Dates: start: 20221115
  4. VIMPAT [Concomitant]
     Active Substance: LACOSAMIDE
     Indication: Product used for unknown indication
     Dosage: 150 MG 2 X DAILY, 200 MG 1 X DAILY (350 MG)
     Route: 065

REACTIONS (2)
  - Product dose omission issue [Recovered/Resolved]
  - Off label use [Not Recovered/Not Resolved]

NARRATIVE: CASE EVENT DATE: 20221213
